FAERS Safety Report 7031754-6 (Version None)
Quarter: 2010Q4

REPORT INFORMATION
  Report Type: 
  Country: None (occurrence: None)
  Receive Date: 20101007
  Receipt Date: 20100929
  Transmission Date: 20110411
  Serious: No
  Sender: FDA-Public Use
  Company Number: US-BIOGENIDEC-2010BI024171

PATIENT
  Age: 54 Year
  Sex: Female

DRUGS (3)
  1. TYSABRI [Suspect]
     Indication: MULTIPLE SCLEROSIS
     Route: 042
     Dates: start: 20100308
  2. AVONEX [Concomitant]
     Indication: MULTIPLE SCLEROSIS
     Route: 030
     Dates: start: 19980221
  3. AVONEX [Concomitant]
     Route: 030

REACTIONS (6)
  - DEPRESSED MOOD [None]
  - EYE OEDEMA [None]
  - HEADACHE [None]
  - MULTIPLE SCLEROSIS RELAPSE [None]
  - SCOTOMA [None]
  - WEIGHT INCREASED [None]
